FAERS Safety Report 18474855 (Version 2)
Quarter: 2020Q4

REPORT INFORMATION
  Report Type: Spontaneous
  Country: PT (occurrence: PT)
  Receive Date: 20201106
  Receipt Date: 20201110
  Transmission Date: 20210114
  Serious: Yes (Other)
  Sender: FDA-Public Use
  Company Number: PT-MALLINCKRODT-T202005274

PATIENT
  Age: 48 Year
  Sex: Male

DRUGS (6)
  1. PREDNISOLONE. [Concomitant]
     Active Substance: PREDNISOLONE
     Indication: PROPHYLAXIS AGAINST GRAFT VERSUS HOST DISEASE
     Dosage: 100 MILLIGRAM, QD
     Route: 065
  2. CYCLOSPORINE. [Concomitant]
     Active Substance: CYCLOSPORINE
     Indication: PROPHYLAXIS AGAINST GRAFT VERSUS HOST DISEASE
     Dosage: 300 MILLIGRAM, QD
     Route: 065
  3. CYCLOSPORINE. [Concomitant]
     Active Substance: CYCLOSPORINE
     Dosage: 200 MILLIGRAM, QOD
     Route: 065
  4. UVADEX [Suspect]
     Active Substance: METHOXSALEN
     Indication: CHRONIC GRAFT VERSUS HOST DISEASE
     Dosage: UNK, MONTHLY 2-DAY SESSIONS, EXTRACORPOREAL, TOTAL OF 80 SESSIONS
     Route: 050
     Dates: start: 201109
  5. PREDNISOLONE. [Concomitant]
     Active Substance: PREDNISOLONE
     Dosage: 5 MILLIGRAM, QOD
     Route: 065
  6. MYCOPHENOLATE MOFETIL. [Concomitant]
     Active Substance: MYCOPHENOLATE MOFETIL
     Indication: PROPHYLAXIS AGAINST GRAFT VERSUS HOST DISEASE
     Dosage: 2 GRAM
     Route: 065

REACTIONS (5)
  - Therapy non-responder [Unknown]
  - Squamous cell carcinoma of the tongue [Unknown]
  - Glossectomy [Recovered/Resolved]
  - Product use in unapproved indication [Unknown]
  - Puncture site haematoma [Unknown]

NARRATIVE: CASE EVENT DATE: 201109
